FAERS Safety Report 9686620 (Version 2)
Quarter: 2013Q4

REPORT INFORMATION
  Report Type: Report from Study
  Country: CZ (occurrence: CZ)
  Receive Date: 20131113
  Receipt Date: 20131120
  Transmission Date: 20140711
  Serious: Yes (Hospitalization)
  Sender: FDA-Public Use
  Company Number: CZ-GLAXOSMITHKLINE-B0935244B

PATIENT
  Age: 56 Year
  Sex: Male
  Weight: 97 kg

DRUGS (5)
  1. DABRAFENIB [Suspect]
     Indication: METASTATIC MALIGNANT MELANOMA
     Dosage: 150MG TWICE PER DAY
     Route: 048
     Dates: start: 20131002
  2. TRAMETINIB [Suspect]
     Indication: METASTATIC MALIGNANT MELANOMA
     Dosage: 2MG PER DAY
     Route: 048
     Dates: start: 20131002
  3. TAMSULOSIN HYDROCHLORIDE [Concomitant]
     Indication: BENIGN PROSTATIC HYPERPLASIA
     Route: 048
  4. CINARIZIN [Concomitant]
     Indication: SPINAL PAIN
     Dosage: 25MG TWICE PER DAY
     Route: 048
  5. ORFIRIL LONG [Concomitant]
     Indication: SPINAL PAIN
     Dosage: 150MG PER DAY
     Route: 048

REACTIONS (1)
  - Pyrexia [Recovered/Resolved]
